FAERS Safety Report 4970396-0 (Version None)
Quarter: 2006Q2

REPORT INFORMATION
  Report Type: 
  Country: None (occurrence: None)
  Receive Date: 20060412
  Receipt Date: 20060208
  Transmission Date: 20061013
  Serious: Yes (Death)
  Sender: FDA-Public Use
  Company Number: JP-JPN-A200600527

PATIENT
  Age: 75 Year
  Sex: Male

DRUGS (7)
  1. PAXIL [Suspect]
     Indication: DEPRESSION
     Dosage: 10MG PER DAY
     Route: 048
     Dates: start: 20060130, end: 20060201
  2. HOKUNALIN [Concomitant]
     Dosage: 1UNIT PER DAY
     Route: 062
  3. SERMION [Concomitant]
     Dosage: 3TAB THREE TIMES PER DAY
     Route: 048
  4. RULID [Concomitant]
     Dosage: 3TAB TWICE PER DAY
     Route: 048
  5. CLEANAL [Concomitant]
     Dosage: 6TAB PER DAY
     Route: 048
  6. MARZULENE S [Concomitant]
     Dosage: 1.5G PER DAY
     Route: 048
  7. LAC B [Concomitant]
     Dosage: 3G THREE TIMES PER DAY
     Route: 048

REACTIONS (1)
  - URINARY RETENTION [None]
